FAERS Safety Report 12569665 (Version 1)
Quarter: 2016Q3

REPORT INFORMATION
  Report Type: Spontaneous
  Country: US (occurrence: None)
  Receive Date: 20160718
  Receipt Date: 20160718
  Transmission Date: 20161109
  Serious: Yes (Other)
  Sender: FDA-Public Use
  Company Number: None

PATIENT
  Age: 13 Year
  Sex: Female
  Weight: 49.7 kg

DRUGS (1)
  1. METHOTREXATE, 50MG/2ML HOSPIRA [Suspect]
     Active Substance: METHOTREXATE SODIUM
     Indication: ACUTE LYMPHOCYTIC LEUKAEMIA
     Route: 037
     Dates: start: 20160621, end: 20160621

REACTIONS (2)
  - Product label confusion [None]
  - Intercepted drug dispensing error [None]

NARRATIVE: CASE EVENT DATE: 20160621
